FAERS Safety Report 14246027 (Version 1)
Quarter: 2017Q4

REPORT INFORMATION
  Report Type: Spontaneous
  Country: RU (occurrence: RU)
  Receive Date: 20171204
  Receipt Date: 20171204
  Transmission Date: 20180321
  Serious: Yes (Life-Threatening, Hospitalization)
  Sender: FDA-Public Use
  Company Number: RU-KYOWAKIRIN-2017BKK003200

PATIENT

DRUGS (3)
  1. FARESTON [Suspect]
     Active Substance: TOREMIFENE CITRATE
     Indication: BREAST CANCER
     Dosage: 60 MG, UNK
     Route: 048
     Dates: start: 20170601, end: 20170903
  2. TAMOXIFEN [Suspect]
     Active Substance: TAMOXIFEN
     Indication: BREAST CANCER
     Dosage: 20 MG, UNKNOWN
     Route: 048
     Dates: start: 20160803, end: 20170903
  3. SELANA [Suspect]
     Active Substance: ANASTROZOLE
     Indication: BREAST CANCER
     Dosage: 1 MG, UNKNOWN
     Route: 048
     Dates: end: 20170903

REACTIONS (5)
  - Depression [Not Recovered/Not Resolved]
  - Endometriosis [Not Recovered/Not Resolved]
  - Obesity [Not Recovered/Not Resolved]
  - Seizure [Not Recovered/Not Resolved]
  - Oedema peripheral [Not Recovered/Not Resolved]

NARRATIVE: CASE EVENT DATE: 20170901
